FAERS Safety Report 12772147 (Version 1)
Quarter: 2016Q3

REPORT INFORMATION
  Report Type: Spontaneous
  Country: JP (occurrence: JP)
  Receive Date: 20160922
  Receipt Date: 20160922
  Transmission Date: 20161109
  Serious: Yes (Hospitalization)
  Sender: FDA-Public Use
  Company Number: JP-SA-2016SA173638

PATIENT
  Age: 77 Year
  Sex: Female
  Weight: 49 kg

DRUGS (10)
  1. ELPLAT [Suspect]
     Active Substance: OXALIPLATIN
     Indication: COLON CANCER
     Route: 041
     Dates: start: 20160803, end: 20160803
  2. XELODA [Suspect]
     Active Substance: CAPECITABINE
     Indication: COLON CANCER
     Route: 048
     Dates: start: 20160808, end: 20160809
  3. FIRSTCIN [Concomitant]
     Active Substance: CEFOZOPRAN HYDROCHLORIDE
     Route: 065
     Dates: start: 20160809, end: 20160810
  4. RECOMODULIN [Concomitant]
     Active Substance: THROMBOMODULIN ALFA
     Route: 065
     Dates: start: 20160810, end: 20160814
  5. VANCOMYCIN [Concomitant]
     Active Substance: VANCOMYCIN
     Route: 065
     Dates: start: 20160811, end: 20160814
  6. ALBUMINAR [Concomitant]
     Active Substance: ALBUMIN HUMAN
     Route: 065
     Dates: start: 20160817
  7. ACELIO [Concomitant]
     Active Substance: ACETAMINOPHEN
     Route: 065
     Dates: start: 20160817, end: 20160817
  8. XELODA [Suspect]
     Active Substance: CAPECITABINE
     Indication: COLON CANCER
     Route: 048
     Dates: start: 20160803, end: 20160807
  9. VENOGLOBULIN IH [Concomitant]
     Active Substance: HUMAN IMMUNOGLOBULIN G
     Route: 065
     Dates: start: 20160811, end: 20160812
  10. MEROPENEM. [Concomitant]
     Active Substance: MEROPENEM
     Route: 065
     Dates: start: 20160811, end: 20160817

REACTIONS (9)
  - Hypoalbuminaemia [Unknown]
  - Sepsis [Unknown]
  - Decreased appetite [Recovering/Resolving]
  - Platelet count decreased [Recovering/Resolving]
  - Headache [Unknown]
  - Disseminated intravascular coagulation [Recovering/Resolving]
  - Staphylococcal infection [Unknown]
  - Hypoaesthesia [Unknown]
  - Malaise [Unknown]

NARRATIVE: CASE EVENT DATE: 20160807
